FAERS Safety Report 11943173 (Version 1)
Quarter: 2016Q1

REPORT INFORMATION
  Report Type: Spontaneous
  Country: GB (occurrence: GB)
  Receive Date: 20160125
  Receipt Date: 20160125
  Transmission Date: 20160526
  Serious: Yes (Other)
  Sender: FDA-Public Use
  Company Number: GB-ACCORD-037114

PATIENT
  Age: 51 Year
  Sex: Female
  Weight: 78 kg

DRUGS (4)
  1. DICLOFENAC [Concomitant]
     Active Substance: DICLOFENAC
  2. ESCITALOPRAM [Suspect]
     Active Substance: ESCITALOPRAM OXALATE
     Indication: DEPRESSION
     Route: 048
     Dates: start: 20151020, end: 20151229
  3. ATORVASTATIN [Concomitant]
     Active Substance: ATORVASTATIN
  4. EZETIMIBE. [Concomitant]
     Active Substance: EZETIMIBE

REACTIONS (4)
  - Fatigue [Unknown]
  - Oedema peripheral [Unknown]
  - Face oedema [Unknown]
  - Electrocardiogram QT prolonged [Recovered/Resolved]

NARRATIVE: CASE EVENT DATE: 20151229
